FAERS Safety Report 9690335 (Version 4)
Quarter: 2014Q3

REPORT INFORMATION
  Report Type: Spontaneous
  Country: US (occurrence: US)
  Receive Date: 20131115
  Receipt Date: 20140912
  Transmission Date: 20150326
  Serious: Yes (Hospitalization)
  Sender: FDA-Public Use
  Company Number: US-BAYER-2013-136220

PATIENT
  Age: 48 Year
  Sex: Female
  Weight: 82.99 kg

DRUGS (1)
  1. MIRENA [Suspect]
     Active Substance: LEVONORGESTREL
     Indication: MENORRHAGIA
     Dosage: 20 MCG/24HR, CONT
     Route: 015
     Dates: start: 20091119, end: 20131220

REACTIONS (12)
  - Embedded device [None]
  - Device expulsion [None]
  - Emotional distress [None]
  - Device difficult to use [Not Recovered/Not Resolved]
  - Abdominal pain [None]
  - Complication of device removal [Not Recovered/Not Resolved]
  - Genital haemorrhage [None]
  - Dysmenorrhoea [Not Recovered/Not Resolved]
  - Device breakage [None]
  - Injury [None]
  - Depression [None]
  - Pelvic pain [None]

NARRATIVE: CASE EVENT DATE: 201310
